FAERS Safety Report 4592291-1 (Version None)
Quarter: 2005Q1

REPORT INFORMATION
  Report Type: 
  Country: None (occurrence: None)
  Receive Date: 20050228
  Receipt Date: 20041122
  Transmission Date: 20050727
  Serious: No
  Sender: FDA-Public Use
  Company Number: US-BRISTOL-MYERS SQUIBB COMPANY-12772539

PATIENT
  Age: 15 Year
  Sex: Female
  Weight: 53 kg

DRUGS (4)
  1. ABILIFY [Suspect]
     Indication: PSYCHOTIC DISORDER
     Route: 048
  2. LEXAPRO [Concomitant]
     Dates: start: 20041101
  3. WELLBUTRIN [Concomitant]
  4. ZOLOFT [Concomitant]
     Dates: end: 20041101

REACTIONS (2)
  - ANXIETY [None]
  - POLLAKIURIA [None]
